FAERS Safety Report 5626422-9 (Version None)
Quarter: 2008Q1

REPORT INFORMATION
  Report Type: 
  Country: None (occurrence: None)
  Receive Date: 20080211
  Receipt Date: 20080129
  Transmission Date: 20080703
  Serious: Yes (Other)
  Sender: FDA-Public Use
  Company Number: CERZ-1000052

PATIENT
  Age: 17 Month
  Sex: Male

DRUGS (6)
  1. CEREZYME [Suspect]
     Indication: GAUCHER'S DISEASE
     Dosage: 60 U/KG, Q2W, INTRAVENOUS
     Route: 042
     Dates: start: 20060927
  2. CARBAMAZEPINE [Concomitant]
  3. CLONAZEPAM [Concomitant]
  4. VALPROATE SODIUM [Concomitant]
  5. ZONEGRAN [Concomitant]
  6. TRICHLORETHYL PHOSPHATE SODIUM [Concomitant]

REACTIONS (1)
  - INTERSTITIAL LUNG DISEASE [None]
